FAERS Safety Report 9419399 (Version 1)
Quarter: 2013Q3

REPORT INFORMATION
  Report Type: Report from Study
  Country: US (occurrence: US)
  Receive Date: 20130725
  Receipt Date: 20130725
  Transmission Date: 20140515
  Serious: Yes (Hospitalization, Other)
  Sender: FDA-Public Use
  Company Number: US-ROCHE-1249596

PATIENT
  Age: 60 Year
  Sex: Male

DRUGS (2)
  1. BEVACIZUMAB [Suspect]
     Indication: GLIOBLASTOMA MULTIFORME
     Dosage: DATE OF LAST DOSE ADMINISTERED 06/JUN/2013
     Route: 042
     Dates: start: 20130606
  2. BLINDED AMG 386 [Suspect]
     Indication: GLIOBLASTOMA MULTIFORME
     Dosage: DATE OF LAST DOSE ADMINISTERED 06/JUN/2013
     Route: 042
     Dates: start: 20130606

REACTIONS (3)
  - Hemisensory neglect [Unknown]
  - Hypertension [Unknown]
  - Fatigue [None]
